FAERS Safety Report 4592202-9 (Version None)
Quarter: 2005Q1

REPORT INFORMATION
  Report Type: 
  Country: None (occurrence: None)
  Receive Date: 20050228
  Receipt Date: 20050216
  Transmission Date: 20050727
  Serious: Yes (Other)
  Sender: FDA-Public Use
  Company Number: FR-JNJFOC-20050204812

PATIENT
  Sex: Female

DRUGS (1)
  1. REMICADE [Suspect]
     Indication: CROHN'S DISEASE
     Dosage: BETWEEEN 5 OR 6 INFUSIONS
     Route: 042

REACTIONS (2)
  - ECTOPIC PREGNANCY [None]
  - ECZEMA [None]
